FAERS Safety Report 15613941 (Version 11)
Quarter: 2019Q4

REPORT INFORMATION
  Report Type: Spontaneous
  Country: US (occurrence: US)
  Receive Date: 20181113
  Receipt Date: 20191014
  Transmission Date: 20200122
  Serious: Yes (Hospitalization)
  Sender: FDA-Public Use
  Company Number: US-ACTELION-A-NJ2018-180246

PATIENT
  Age: 54 Year
  Sex: Male
  Weight: 106.58 kg

DRUGS (5)
  1. VELETRI [Suspect]
     Active Substance: EPOPROSTENOL
     Dosage: 12 NG/KG, PER MIN
     Route: 042
  2. VELETRI [Suspect]
     Active Substance: EPOPROSTENOL
     Dosage: 20 NG/KG, PER MIN
     Route: 042
  3. VELETRI [Suspect]
     Active Substance: EPOPROSTENOL
     Indication: PULMONARY ARTERIAL HYPERTENSION
     Dosage: 10 NG/KG, PER MIN
     Route: 042
     Dates: start: 201810
  4. LETAIRIS [Suspect]
     Active Substance: AMBRISENTAN
     Indication: PRODUCT USED FOR UNKNOWN INDICATION
     Route: 065
  5. VELETRI [Suspect]
     Active Substance: EPOPROSTENOL
     Dosage: 16 NG/KG, PER MIN
     Route: 042

REACTIONS (31)
  - Swelling [Unknown]
  - Glossodynia [Unknown]
  - Blood pressure increased [Unknown]
  - Abdominal pain [Unknown]
  - Catheter site pruritus [Not Recovered/Not Resolved]
  - Dyspnoea [Unknown]
  - Headache [Unknown]
  - Flushing [Unknown]
  - Weight decreased [Unknown]
  - Poor quality sleep [Not Recovered/Not Resolved]
  - Diarrhoea [Not Recovered/Not Resolved]
  - Catheter site erythema [Unknown]
  - Catheter site pain [Unknown]
  - Erythema [Unknown]
  - Pain in jaw [Not Recovered/Not Resolved]
  - Abdominal pain upper [Unknown]
  - Sleep apnoea syndrome [Unknown]
  - Lung transplant [Unknown]
  - Cough [Unknown]
  - Decreased appetite [Unknown]
  - Catheter site rash [Not Recovered/Not Resolved]
  - Pruritus [Not Recovered/Not Resolved]
  - Nasal discomfort [Unknown]
  - Fluid overload [Unknown]
  - Fatigue [Unknown]
  - Injection site rash [Unknown]
  - Skin irritation [Unknown]
  - Sneezing [Unknown]
  - Rash [Unknown]
  - Oropharyngeal pain [Unknown]
  - Pain [Unknown]

NARRATIVE: CASE EVENT DATE: 201810
